FAERS Safety Report 8450355-6 (Version None)
Quarter: 2012Q2

REPORT INFORMATION
  Report Type: 
  Country: None (occurrence: None)
  Receive Date: 20120620
  Receipt Date: 20120615
  Transmission Date: 20120825
  Serious: Yes (Death, Other)
  Sender: FDA-Public Use
  Company Number: PHHY2010TR89315

PATIENT
  Age: 83 Year
  Sex: Male

DRUGS (3)
  1. EXELON [Suspect]
     Dosage: 9.5 MG, DAILY
     Route: 062
  2. EXELON [Suspect]
     Indication: DEMENTIA ALZHEIMER'S TYPE
     Route: 062
     Dates: start: 20100831, end: 20101130
  3. EXELON [Suspect]
     Dosage: 18 MG, DAILY
     Route: 062
     Dates: start: 20101111

REACTIONS (4)
  - EXTRADURAL HAEMATOMA [None]
  - AMNESIA [None]
  - DEATH [None]
  - CEREBRAL HAEMORRHAGE [None]
